FAERS Safety Report 7549971-5 (Version None)
Quarter: 2011Q2

REPORT INFORMATION
  Report Type: 
  Country: None (occurrence: None)
  Receive Date: 20110615
  Receipt Date: 20110614
  Transmission Date: 20111010
  Serious: Yes (Other)
  Sender: FDA-Public Use
  Company Number: US-PFIZER INC-2011130307

PATIENT
  Sex: Female

DRUGS (1)
  1. XANAX [Suspect]

REACTIONS (1)
  - WITHDRAWAL SYNDROME [None]
